FAERS Safety Report 20999436 (Version 4)
Quarter: 2022Q3

REPORT INFORMATION
  Report Type: Other
  Country: None (occurrence: US)
  Receive Date: 20220623
  Receipt Date: 20220718
  Transmission Date: 20221026
  Serious: Yes (Hospitalization)
  Sender: FDA-Public Use
  Company Number: US-Mission Pharmacal Company-2130205

PATIENT
  Age: 69 Year
  Sex: Female

DRUGS (2)
  1. THIOLA [Suspect]
     Active Substance: TIOPRONIN
     Indication: Cystinuria
     Route: 048
     Dates: start: 20190331
  2. ESOMEPRAZOLE. [Concomitant]
     Active Substance: ESOMEPRAZOLE MAGNESIUM

REACTIONS (9)
  - Renal failure [Unknown]
  - Drug ineffective [Unknown]
  - Flank pain [Unknown]
  - Renal impairment [Unknown]
  - Urinary tract infection [Unknown]
  - Incorrect drug administration rate [Unknown]
  - Pyrexia [Unknown]
  - White blood cell count increased [Unknown]
  - Bacterial infection [Unknown]

NARRATIVE: CASE EVENT DATE: 20220610
